FAERS Safety Report 13610767 (Version 2)
Quarter: 2017Q3

REPORT INFORMATION
  Report Type: Spontaneous
  Country: US (occurrence: US)
  Receive Date: 20170605
  Receipt Date: 20170703
  Transmission Date: 20171127
  Serious: No
  Sender: FDA-Public Use
  Company Number: US-GLAXOSMITHKLINE-US2017084611

PATIENT
  Age: 53 Year
  Sex: Female
  Weight: 108.84 kg

DRUGS (1)
  1. TANZEUM [Suspect]
     Active Substance: ALBIGLUTIDE
     Indication: DIABETES MELLITUS
     Dosage: 50 MG, WE
     Route: 042
     Dates: start: 201705

REACTIONS (2)
  - Circumstance or information capable of leading to device use error [Unknown]
  - Product label confusion [Unknown]

NARRATIVE: CASE EVENT DATE: 201705
